FAERS Safety Report 4930770-5 (Version None)
Quarter: 2006Q1

REPORT INFORMATION
  Report Type: 
  Country: None (occurrence: None)
  Receive Date: 20060302
  Receipt Date: 20060227
  Transmission Date: 20060701
  Serious: Yes (Hospitalization)
  Sender: FDA-Public Use
  Company Number: CA-SANOFI-SYNTHELABO-F01200600553

PATIENT
  Sex: Male

DRUGS (14)
  1. OXALIPLATIN [Suspect]
     Indication: COLON CANCER
     Route: 042
  2. CAPECITABINE [Suspect]
     Dosage: 2150 MG TWICE DAILY ONCE 3 WEEKS
     Route: 048
  3. BEVACIZUMAB [Suspect]
     Route: 042
  4. PLAVIX [Concomitant]
     Dosage: UNK
     Route: 065
     Dates: start: 20050617
  5. ENOXAPARIN SODIUM [Concomitant]
     Dosage: UNK
     Route: 065
     Dates: start: 20050618, end: 20050621
  6. METOPROLOL [Concomitant]
     Dosage: UNK
     Route: 065
     Dates: start: 20050604
  7. NITRO-DUR [Concomitant]
     Dosage: UNK
     Route: 065
     Dates: start: 20050617, end: 20050622
  8. RAMIPRIL [Concomitant]
     Dosage: UNK
     Route: 065
     Dates: start: 20050603
  9. CRESTOR [Concomitant]
     Dosage: UNK
     Route: 065
     Dates: start: 20050603
  10. ENTROPHEN [Concomitant]
     Dosage: UNK
     Route: 065
     Dates: start: 20050603
  11. OXAZEPAM [Concomitant]
     Dosage: UNK
     Route: 065
     Dates: start: 20050617, end: 20050621
  12. PANTOPRAZOLE SODIUM [Concomitant]
     Dosage: UNK
     Route: 065
     Dates: start: 20050617, end: 20050622
  13. LORAZEPAM [Concomitant]
     Dosage: UNK
     Route: 065
     Dates: start: 20050618, end: 20050618
  14. TIMOPTIC [Concomitant]
     Dosage: UNK
     Route: 065

REACTIONS (2)
  - ANGINA UNSTABLE [None]
  - CORONARY ARTERY DISEASE [None]
